FAERS Safety Report 17405706 (Version 1)
Quarter: 2020Q1

REPORT INFORMATION
  Report Type: Spontaneous
  Country: DE (occurrence: DE)
  Receive Date: 20200212
  Receipt Date: 20200212
  Transmission Date: 20200409
  Serious: Yes (Other)
  Sender: FDA-Public Use
  Company Number: DE-AUROBINDO-AUR-APL-2020-006684

PATIENT
  Age: 1 Day
  Sex: Female
  Weight: 2.38 kg

DRUGS (3)
  1. VENLAFAXINE [Suspect]
     Active Substance: VENLAFAXINE HYDROCHLORIDE
     Indication: ANXIETY DISORDER
     Dosage: 150 MILLIGRAM, ONCE A DAY
     Route: 064
     Dates: start: 20181102, end: 20190808
  2. FOLIC ACID. [Concomitant]
     Active Substance: FOLIC ACID
     Indication: PROPHYLAXIS OF NEURAL TUBE DEFECT
     Dosage: 0.4 MILLIGRAM, ONCE A DAY
     Route: 064
     Dates: start: 20181102, end: 20190808
  3. THYRONAJOD [Concomitant]
     Active Substance: LEVOTHYROXINE SODIUM\POTASSIUM IODIDE
     Indication: HYPOTHYROIDISM
     Dosage: 150 MICROGRAM, ONCE A DAY 100 [?G/D]/150 [?G/D]
     Route: 064
     Dates: start: 20181102, end: 20190808

REACTIONS (1)
  - Small for dates baby [Recovered/Resolved]

NARRATIVE: CASE EVENT DATE: 20190808
